FAERS Safety Report 21270843 (Version 1)
Quarter: 2022Q3

REPORT INFORMATION
  Report Type: Spontaneous
  Country: US (occurrence: US)
  Receive Date: 20220830
  Receipt Date: 20220830
  Transmission Date: 20221027
  Serious: Yes (Hospitalization, Other)
  Sender: FDA-Public Use
  Company Number: US-GSK-US2022122459

PATIENT

DRUGS (5)
  1. TRELEGY ELLIPTA [Suspect]
     Active Substance: FLUTICASONE FUROATE\UMECLIDINIUM BROMIDE\VILANTEROL TRIFENATATE
     Indication: Chronic obstructive pulmonary disease
     Dosage: UNK, 100 MCG /62.5 MCG/ 25 MCG
  2. ELIQUIS [Concomitant]
     Active Substance: APIXABAN
     Indication: Transient ischaemic attack
     Dosage: 5 MG, BID
     Dates: start: 20170301
  3. DILTIAZEM [Concomitant]
     Active Substance: DILTIAZEM
     Indication: Transient ischaemic attack
     Dosage: 180 MG
     Dates: start: 20170301
  4. ALIGN?DAILY?PROBIOTIC?SUPPLEMENT [Concomitant]
     Indication: Clostridium difficile colitis
     Dosage: UNK
     Dates: start: 20170301
  5. ATORVASTATIN [Concomitant]
     Active Substance: ATORVASTATIN
     Indication: Blood cholesterol
     Dosage: 80 MG
     Dates: start: 20170301

REACTIONS (6)
  - Kidney infection [Not Recovered/Not Resolved]
  - Condition aggravated [Not Recovered/Not Resolved]
  - Nephrolithiasis [Unknown]
  - Lymphoma [Unknown]
  - Malignant neoplasm progression [Unknown]
  - Emphysema [Unknown]

NARRATIVE: CASE EVENT DATE: 20220801
